FAERS Safety Report 9788590 (Version 2)
Quarter: 2013Q4

REPORT INFORMATION
  Report Type: Report from Study
  Country: CO (occurrence: CO)
  Receive Date: 20131230
  Receipt Date: 20131230
  Transmission Date: 20140711
  Serious: Yes (Hospitalization)
  Sender: FDA-Public Use
  Company Number: PHHY2013CO147827

PATIENT
  Age: 60 Year
  Sex: Male
  Weight: 74 kg

DRUGS (5)
  1. ACLASTA [Suspect]
     Indication: OSTEOPOROSIS
     Dosage: 5 MG, UNK
     Route: 042
     Dates: start: 20130117
  2. OXYCODONE [Concomitant]
     Dosage: UNK UKN, UNK
  3. NASONEX [Concomitant]
     Dosage: UNK UKN, UNK
  4. SERETIDE [Concomitant]
     Dosage: UNK UKN, UNK
  5. SINGULAIR [Concomitant]
     Dosage: UNK UKN, UNK

REACTIONS (1)
  - Chronic sinusitis [Recovered/Resolved]
